FAERS Safety Report 6675305-4 (Version None)
Quarter: 2010Q2

REPORT INFORMATION
  Report Type: 
  Country: None (occurrence: None)
  Receive Date: 20100409
  Receipt Date: 20100122
  Transmission Date: 20101027
  Serious: No
  Sender: FDA-Public Use
  Company Number: A0841029A

PATIENT
  Age: 49 Year
  Sex: Female

DRUGS (3)
  1. TYKERB [Suspect]
     Dosage: 4TAB PER DAY
     Route: 048
     Dates: start: 20100114
  2. HERCEPTIN [Concomitant]
  3. ARIMIDEX [Concomitant]

REACTIONS (6)
  - DIARRHOEA [None]
  - EPISTAXIS [None]
  - NASAL CONGESTION [None]
  - ORAL PAIN [None]
  - PRURITUS [None]
  - RASH [None]
